FAERS Safety Report 5637267-8 (Version None)
Quarter: 2008Q1

REPORT INFORMATION
  Report Type: 
  Country: None (occurrence: None)
  Receive Date: 20080225
  Receipt Date: 20071219
  Transmission Date: 20080703
  Serious: No
  Sender: FDA-Public Use
  Company Number: US-BRISTOL-MYERS SQUIBB COMPANY-14020804

PATIENT
  Age: 42 Year
  Sex: Male
  Weight: 54 kg

DRUGS (3)
  1. KENALOG [Suspect]
     Indication: SCIATICA
  2. LEXAPRO [Concomitant]
  3. NEURONTIN [Concomitant]

REACTIONS (4)
  - ARTHROPATHY [None]
  - BURNING SENSATION [None]
  - MUSCULAR WEAKNESS [None]
  - PARAESTHESIA [None]
